FAERS Safety Report 4332885-1 (Version None)
Quarter: 2004Q1

REPORT INFORMATION
  Report Type: 
  Country: None (occurrence: None)
  Receive Date: 20040330
  Receipt Date: 20040317
  Transmission Date: 20041129
  Serious: No
  Sender: FDA-Public Use
  Company Number: 2004UW05199

PATIENT
  Age: 50 Year
  Sex: Male
  Weight: 90.7194 kg

DRUGS (4)
  1. ZOMIG [Suspect]
     Indication: HEADACHE
     Dosage: 5 MG
     Dates: start: 20020327
  2. ZOMIG [Suspect]
     Indication: MIGRAINE
     Dosage: 5 MG
     Dates: start: 20020327
  3. ELAVIL [Concomitant]
  4. MIDRIN [Concomitant]

REACTIONS (1)
  - SUBARACHNOID HAEMORRHAGE [None]
